FAERS Safety Report 6613585-1 (Version None)
Quarter: 2010Q1

REPORT INFORMATION
  Report Type: 
  Country: None (occurrence: None)
  Receive Date: 20100225
  Receipt Date: 20100222
  Transmission Date: 20100710
  Serious: Yes (Congenital Anomaly)
  Sender: FDA-Public Use
  Company Number: 8054410

PATIENT
  Sex: Male

DRUGS (4)
  1. KEPPRA [Suspect]
     Indication: CONVULSION
     Dosage: (2000 MG BID TRANSPLACENTAL)
     Route: 064
     Dates: end: 20090529
  2. LAMICTAL CD [Concomitant]
  3. MULTIVITAMIN /00831701/ [Concomitant]
  4. ZYRTEC [Concomitant]

REACTIONS (2)
  - EXOMPHALOS [None]
  - MATERNAL DRUGS AFFECTING FOETUS [None]
